FAERS Safety Report 4478384-8 (Version None)
Quarter: 2004Q3

REPORT INFORMATION
  Report Type: 
  Country: None (occurrence: None)
  Receive Date: 20040923
  Receipt Date: 20040624
  Transmission Date: 20050211
  Serious: No
  Sender: FDA-Public Use
  Company Number: USA040671000

PATIENT
  Age: 85 Year
  Sex: Male
  Weight: 66 kg

DRUGS (3)
  1. FORTEO [Suspect]
     Indication: OSTEOPOROSIS
     Dates: start: 20040526
  2. HEART MEDICINES [Concomitant]
  3. MULTIVITAMIN [Concomitant]

REACTIONS (2)
  - CONSTIPATION [None]
  - NIPPLE PAIN [None]
